FAERS Safety Report 18899178 (Version 6)
Quarter: 2021Q2

REPORT INFORMATION
  Report Type: Spontaneous
  Country: US (occurrence: US)
  Receive Date: 20210216
  Receipt Date: 20210621
  Transmission Date: 20210717
  Serious: Yes (Congenital Anomaly, Other)
  Sender: FDA-Public Use
  Company Number: NVSC2021US035452

PATIENT
  Age: 0 Day
  Sex: Female

DRUGS (1)
  1. ZOFRAN [Suspect]
     Active Substance: ONDANSETRON HYDROCHLORIDE
     Indication: FOETAL EXPOSURE DURING PREGNANCY
     Dosage: MOTHER^S DOSE: 0.25 ML
     Route: 064

REACTIONS (26)
  - Bradycardia neonatal [Unknown]
  - Injury [Unknown]
  - Constipation [Unknown]
  - Anomalous pulmonary venous connection [Unknown]
  - Left-to-right cardiac shunt [Unknown]
  - Tricuspid valve incompetence [Unknown]
  - Foetal exposure during pregnancy [Unknown]
  - Pulmonary valve incompetence [Unknown]
  - Neonatal dyspnoea [Unknown]
  - Right ventricular dilatation [Unknown]
  - Chest pain [Unknown]
  - Congenital choroid plexus cyst [Unknown]
  - Rash [Unknown]
  - Cough [Unknown]
  - Neonatal respiratory distress syndrome [Unknown]
  - Premature baby [Unknown]
  - Heart disease congenital [Unknown]
  - Pulmonary valve stenosis [Unknown]
  - Cardiac murmur [Unknown]
  - Pyelocaliectasis [Unknown]
  - Vomiting [Unknown]
  - Gastrooesophageal reflux disease [Unknown]
  - Oral candidiasis [Unknown]
  - Atrial septal defect [Unknown]
  - Pyrexia [Unknown]
  - Decreased appetite [Unknown]

NARRATIVE: CASE EVENT DATE: 20080820
